FAERS Safety Report 11789647 (Version 2)
Quarter: 2015Q4

REPORT INFORMATION
  Report Type: Spontaneous
  Country: JP (occurrence: JP)
  Receive Date: 20151201
  Receipt Date: 20151207
  Transmission Date: 20160305
  Serious: Yes (Other)
  Sender: FDA-Public Use
  Company Number: JP-GLAXOSMITHKLINE-JP2015JPN160892

PATIENT
  Age: 74 Year
  Sex: Male
  Weight: 54 kg

DRUGS (12)
  1. VALTREX [Suspect]
     Active Substance: VALACYCLOVIR HYDROCHLORIDE
     Indication: HERPES ZOSTER
     Dosage: 500 MG, QD
     Route: 048
     Dates: start: 20091214, end: 20091218
  2. CALONAL [Concomitant]
     Active Substance: ACETAMINOPHEN
     Dosage: 300 MG, BID
  3. CALTAN [Concomitant]
     Active Substance: CALCIUM CARBONATE
     Dosage: 2 G, TID
  4. MOHRUS TAPE [Concomitant]
     Active Substance: KETOPROFEN
     Dosage: 60 MG, BID
  5. SEISHOKU [Concomitant]
     Active Substance: SODIUM CHLORIDE
     Dosage: 100 ML, 24D
  6. ARASENA-A [Concomitant]
     Active Substance: VIDARABINE
     Indication: HERPES ZOSTER
  7. ALFAROL [Concomitant]
     Active Substance: ALFACALCIDOL
     Dosage: 0.5 ?G, QD
  8. ZOVIRAX [Concomitant]
     Active Substance: ACYCLOVIR
     Dosage: 250 MG, 1D
  9. FOSRENOL [Concomitant]
     Active Substance: LANTHANUM CARBONATE
     Dosage: 250 MG, TID
  10. RHYTHMY [Concomitant]
     Active Substance: RILMAZAFONE HYDROCHLORIDE
     Dosage: 2 MG, QD
  11. FOLIAMIN [Concomitant]
     Active Substance: FOLIC ACID
     Dosage: 5 MG, BID
  12. PROTERNOL S [Concomitant]
     Dosage: 15 MG, TID

REACTIONS (11)
  - Drug level increased [Unknown]
  - Hypertension [Recovered/Resolved]
  - Headache [Recovered/Resolved]
  - Crying [Recovered/Resolved]
  - Hallucination [Recovered/Resolved]
  - Violence-related symptom [Recovered/Resolved]
  - Dysarthria [Recovered/Resolved]
  - Loss of control of legs [Recovered/Resolved]
  - Hypokinesia [Recovered/Resolved]
  - Affect lability [Recovered/Resolved]
  - Abnormal behaviour [Recovered/Resolved]

NARRATIVE: CASE EVENT DATE: 20091217
